FAERS Safety Report 5190536-0 (Version None)
Quarter: 2006Q4

REPORT INFORMATION
  Report Type: 
  Country: None (occurrence: None)
  Receive Date: 20061222
  Receipt Date: 20060914
  Transmission Date: 20070319
  Serious: Yes (Hospitalization)
  Sender: FDA-Public Use
  Company Number: US-ELI_LILLY_AND_COMPANY-US200609003466

PATIENT
  Age: 60 Year
  Sex: Female
  Weight: 77.551 kg

DRUGS (3)
  1. WELLBUTRIN [Concomitant]
     Dates: start: 20030101, end: 20060101
  2. DEPAKOTE [Concomitant]
     Dates: start: 20040101
  3. ZYPREXA [Suspect]
     Dosage: 10 MG, UNK
     Dates: start: 20030226, end: 20030321

REACTIONS (3)
  - BLOOD CHOLESTEROL INCREASED [None]
  - CATHETERISATION CARDIAC [None]
  - DIABETES MELLITUS [None]
